FAERS Safety Report 19993647 (Version 1)
Quarter: 2021Q4

REPORT INFORMATION
  Report Type: Spontaneous
  Country: US (occurrence: US)
  Receive Date: 20211026
  Receipt Date: 20211026
  Transmission Date: 20220303
  Serious: No
  Sender: FDA-Public Use
  Company Number: US-SA-SAC20211015000946

PATIENT
  Age: 39 Year
  Sex: Female

DRUGS (2)
  1. DUPIXENT [Suspect]
     Active Substance: DUPILUMAB
     Indication: Neurodermatitis
     Dosage: 2 DF, 1X
     Route: 058
     Dates: start: 20210930, end: 20210930
  2. DUPIXENT [Suspect]
     Active Substance: DUPILUMAB
     Indication: Eczema

REACTIONS (4)
  - Visual impairment [Unknown]
  - Vertigo [Unknown]
  - Dizziness [Unknown]
  - Gait disturbance [Unknown]

NARRATIVE: CASE EVENT DATE: 20211013
